FAERS Safety Report 19663671 (Version 1)
Quarter: 2021Q3

REPORT INFORMATION
  Report Type: Other
  Country: AU (occurrence: AU)
  Receive Date: 20210805
  Receipt Date: 20210805
  Transmission Date: 20211014
  Serious: Yes (Other)
  Sender: FDA-Public Use
  Company Number: AU-B.BRAUN MEDICAL INC.-2114695

PATIENT
  Age: 79 Year
  Sex: Male

DRUGS (7)
  1. MEROPENEM FOR INJECTION USP AND SODIUM CHLORIDE INJECTION USP IN THE [Suspect]
     Active Substance: MEROPENEM\SODIUM CHLORIDE
     Indication: INFECTION
  2. ATORVASTATIN [Concomitant]
     Active Substance: ATORVASTATIN
  3. TPN [Concomitant]
     Active Substance: AMINO ACIDS\DEXTROSE\ELECTROLYTES NOS\SOYBEAN OIL
  4. AMLODIPINE [Concomitant]
     Active Substance: AMLODIPINE BESYLATE
  5. VANCOMYCIN [Concomitant]
     Active Substance: VANCOMYCIN
  6. DUTASTERIDE?TAMSULOSIN [Concomitant]
     Active Substance: DUTASTERIDE\TAMSULOSIN HYDROCHLORIDE
  7. CRYSTALLOIDS [Concomitant]
     Active Substance: UNSPECIFIED INGREDIENT

REACTIONS (1)
  - Vanishing bile duct syndrome [None]
